FAERS Safety Report 6471670-1 (Version None)
Quarter: 2009Q4

REPORT INFORMATION
  Report Type: 
  Country: None (occurrence: None)
  Receive Date: 20091203
  Receipt Date: 20080724
  Transmission Date: 20100525
  Serious: Yes (Other)
  Sender: FDA-Public Use
  Company Number: HU-ELI_LILLY_AND_COMPANY-HU200803006420

PATIENT
  Age: 61 Year
  Sex: Female

DRUGS (4)
  1. HUMULIN 70/30 [Suspect]
     Indication: DIABETES MELLITUS
     Dosage: UNK, UNKNOWN
     Route: 065
  2. HUMULIN 70/30 [Suspect]
     Dosage: UNK, UNKNOWN
     Route: 065
     Dates: end: 20080324
  3. HUMALOG [Suspect]
     Indication: DIABETES MELLITUS
     Dosage: UNK, UNKNOWN
     Route: 065
  4. HUMALOG [Concomitant]
     Indication: DIABETES MELLITUS
     Dosage: UNK, UNKNOWN
     Route: 065
     Dates: start: 20080325

REACTIONS (2)
  - ANGINA PECTORIS [None]
  - DRUG HYPERSENSITIVITY [None]
